FAERS Safety Report 9098278 (Version 10)
Quarter: 2018Q4

REPORT INFORMATION
  Report Type: Spontaneous
  Country: BR (occurrence: BR)
  Receive Date: 20130213
  Receipt Date: 20181025
  Transmission Date: 20190205
  Serious: No
  Sender: FDA-Public Use
  Company Number: BR-AMGEN-BRASP2013009157

PATIENT
  Age: 50 Year
  Sex: Male
  Weight: 40 kg

DRUGS (9)
  1. ENBREL [Suspect]
     Active Substance: ETANERCEPT
     Indication: JUVENILE IDIOPATHIC ARTHRITIS
     Dosage: 50 MG, ONCE WEEKLY
     Route: 058
     Dates: start: 2013
  2. INDOCID [Concomitant]
     Active Substance: INDOMETHACIN
     Dosage: 50 MG, UNK
  3. AAS [Concomitant]
     Active Substance: ASPIRIN
     Dosage: UNK
     Dates: start: 1998
  4. OMEPRAZOLE. [Concomitant]
     Active Substance: OMEPRAZOLE
     Dosage: UNK
  5. INDOCID [Concomitant]
     Active Substance: INDOMETHACIN
     Dosage: 75 MG, UNK
  6. VASOGARD [Concomitant]
     Active Substance: CILOSTAZOL
     Dosage: UNK
     Dates: start: 1998
  7. INDOCID [Concomitant]
     Active Substance: INDOMETHACIN
     Dosage: 100 MG, UNK
     Dates: start: 1977
  8. INDOCID [Concomitant]
     Active Substance: INDOMETHACIN
     Dosage: 75 MG, UNK
  9. PREDNISONE. [Concomitant]
     Active Substance: PREDNISONE
     Dosage: 25 MG, UNK

REACTIONS (2)
  - Localised infection [Recovered/Resolved]
  - Fear [Recovered/Resolved]
